FAERS Safety Report 6920337-1 (Version None)
Quarter: 2010Q3

REPORT INFORMATION
  Report Type: 
  Country: None (occurrence: None)
  Receive Date: 20100809
  Receipt Date: 20100728
  Transmission Date: 20110219
  Serious: Yes (Hospitalization)
  Sender: FDA-Public Use
  Company Number: 012654

PATIENT
  Sex: Male
  Weight: 92.5 kg

DRUGS (19)
  1. CERTOLIZUMAB PEGOL [Suspect]
     Indication: RHEUMATOID ARTHRITIS
     Dosage: (SUBCUTANEOUS)
     Route: 058
     Dates: start: 20091007, end: 20100407
  2. METHOTREXATE [Concomitant]
  3. ACETAMINOPHEN AND HYDROCODONE BITARTRATE [Concomitant]
  4. FOLIC ACID [Concomitant]
  5. ADVAIR DISKUS 100/50 [Concomitant]
  6. CLONIDINE [Concomitant]
  7. LASIX [Concomitant]
  8. SYNTHROID [Concomitant]
  9. KLOR-CON [Concomitant]
  10. CELEXA [Concomitant]
  11. ALLOPURINOL [Concomitant]
  12. MULTI-VITAMINS [Concomitant]
  13. VITAMIN B12 NOS [Concomitant]
  14. FLOMAX [Concomitant]
  15. CALCIUM D /01272001/ [Concomitant]
  16. LISINOPRIL [Concomitant]
  17. LANTUS [Concomitant]
  18. INSULIN [Concomitant]
  19. DESOXIMETASONE [Concomitant]

REACTIONS (11)
  - BLOOD CREATININE INCREASED [None]
  - BLOOD SODIUM INCREASED [None]
  - BRONCHITIS [None]
  - CARDIAC FAILURE CONGESTIVE [None]
  - CHEST DISCOMFORT [None]
  - CHEST PAIN [None]
  - CHRONIC OBSTRUCTIVE PULMONARY DISEASE [None]
  - PLATELET COUNT DECREASED [None]
  - PNEUMONIA [None]
  - PSEUDOMONAS INFECTION [None]
  - SPUTUM CULTURE POSITIVE [None]
